FAERS Safety Report 6264149-3 (Version None)
Quarter: 2009Q3

REPORT INFORMATION
  Report Type: 
  Country: None (occurrence: None)
  Receive Date: 20090710
  Receipt Date: 20090630
  Transmission Date: 20100115
  Serious: Yes (Hospitalization)
  Sender: FDA-Public Use
  Company Number: GB-PFIZER INC-2009233891

PATIENT
  Age: 24 Year

DRUGS (4)
  1. DOXORUBICIN HCL [Suspect]
     Indication: HODGKIN'S DISEASE
     Dosage: 25 MG/M2, UNK
     Dates: start: 20090320, end: 20090506
  2. BLEOMYCIN SULFATE [Suspect]
     Indication: HODGKIN'S DISEASE
     Dosage: 10 MG/M2, UNK
     Dates: start: 20090320, end: 20090506
  3. DACARBAZINE [Suspect]
     Indication: HODGKIN'S DISEASE
     Dosage: 375 MG/M2, UNK
     Dates: start: 20090320, end: 20090506
  4. VINBLASTINE [Suspect]
     Indication: HODGKIN'S DISEASE
     Dosage: 6 MG/M2, UNK
     Dates: start: 20090320, end: 20090506

REACTIONS (1)
  - LUNG INFILTRATION [None]
